FAERS Safety Report 6705978-9 (Version None)
Quarter: 2010Q2

REPORT INFORMATION
  Report Type: 
  Country: None (occurrence: None)
  Receive Date: 20100430
  Receipt Date: 20100430
  Transmission Date: 20101027
  Serious: Yes (Other)
  Sender: FDA-Public Use
  Company Number: None

PATIENT
  Sex: Male
  Weight: 132 kg

DRUGS (1)
  1. AMIODARONE HCL [Suspect]
     Dosage: 300MG IN 100ML OVER 30 MINUTES ONCE IV BOLUS
     Route: 040
     Dates: start: 20100426, end: 20100426

REACTIONS (8)
  - CEREBROVASCULAR ACCIDENT [None]
  - ENCEPHALOPATHY [None]
  - ERYTHEMA [None]
  - FLUSHING [None]
  - HYPOXIA [None]
  - PARESIS [None]
  - PURPLE GLOVE SYNDROME [None]
  - WITHDRAWAL OF LIFE SUPPORT [None]
